FAERS Safety Report 25755810 (Version 1)
Quarter: 2025Q3

REPORT INFORMATION
  Report Type: Spontaneous
  Country: US (occurrence: None)
  Receive Date: 20250902
  Receipt Date: 20250902
  Transmission Date: 20251020
  Serious: No
  Sender: FDA-CTU
  Company Number: None

PATIENT
  Age: 23 Year
  Sex: Female
  Weight: 67.5 kg

DRUGS (3)
  1. ESCITALOPRAM [Suspect]
     Active Substance: ESCITALOPRAM OXALATE
     Indication: Depression
     Dosage: OTHER QUANTITY : 1 TABLET(S);?FREQUENCY : DAILY;?
     Route: 048
     Dates: start: 20221015
  2. ESCITALOPRAM [Suspect]
     Active Substance: ESCITALOPRAM OXALATE
     Indication: Anxiety
  3. LEXAPRO [Concomitant]
     Active Substance: ESCITALOPRAM OXALATE

REACTIONS (36)
  - General physical health deterioration [None]
  - Nervous system disorder [None]
  - Mental disorder [None]
  - Emotional disorder [None]
  - Electric shock sensation [None]
  - Electric shock sensation [None]
  - Dizziness [None]
  - Vertigo [None]
  - Visual impairment [None]
  - Dizziness [None]
  - Disorientation [None]
  - Cognitive disorder [None]
  - Sensory disturbance [None]
  - Photosensitivity reaction [None]
  - Hyperacusis [None]
  - Pain [None]
  - Nausea [None]
  - Decreased appetite [None]
  - Weight fluctuation [None]
  - Malnutrition [None]
  - Affect lability [None]
  - Depressed mood [None]
  - Feeling of despair [None]
  - Irritability [None]
  - Panic attack [None]
  - Anxiety [None]
  - Paranoia [None]
  - Obsessive thoughts [None]
  - Lethargy [None]
  - Apathy [None]
  - Sluggishness [None]
  - Discomfort [None]
  - Fatigue [None]
  - Withdrawal syndrome [None]
  - Depression [None]
  - Disease recurrence [None]
